FAERS Safety Report 9381593 (Version 1)
Quarter: 2013Q3

REPORT INFORMATION
  Report Type: Spontaneous
  Country: NO (occurrence: NO)
  Receive Date: 20130703
  Receipt Date: 20130703
  Transmission Date: 20140515
  Serious: Yes (Disabling)
  Sender: FDA-Public Use
  Company Number: NO-SANOFI-AVENTIS-2013SA064116

PATIENT
  Age: 64 Year
  Sex: Female

DRUGS (8)
  1. ARAVA [Suspect]
     Indication: PSORIATIC ARTHROPATHY
     Route: 048
     Dates: start: 20120522, end: 20120704
  2. MAREVAN [Concomitant]
     Indication: PAROXYSMAL ARRHYTHMIA
     Dosage: DOSE: 2 TABLETS ON SUNDAYS, 1 TABLET A DAY FOR THE REST OF THE WEEK
  3. LEVAXIN [Concomitant]
     Dosage: DOSE: 150 MICROGRAMS, 1,5 TABLETS MON-FRI, 1 TABLET TUE-THU-SAT-SUN
  4. ZANTAC [Concomitant]
  5. CANDESARTAN CILEXETIL/HYDROCHLOROTHIAZIDE [Concomitant]
  6. SELO-ZOK [Concomitant]
  7. ALLOPUR [Concomitant]
  8. PANODIL [Concomitant]

REACTIONS (9)
  - Faecal incontinence [Recovering/Resolving]
  - Oral pain [Recovering/Resolving]
  - Diarrhoea [Recovering/Resolving]
  - Vomiting [Recovering/Resolving]
  - Headache [Recovering/Resolving]
  - Dizziness [Recovering/Resolving]
  - Abdominal pain [Recovering/Resolving]
  - Weight decreased [Recovering/Resolving]
  - Fatigue [Recovering/Resolving]
